FAERS Safety Report 8842690 (Version 1)
Quarter: 2012Q4

REPORT INFORMATION
  Report Type: 
  Country: US (occurrence: US)
  Receive Date: 20121016
  Receipt Date: 20121016
  Transmission Date: 20130627
  Serious: No
  Sender: FDA-Public Use
  Company Number: US-PFIZER INC-2012254782

PATIENT
  Sex: Female
  Weight: 95.24 kg

DRUGS (2)
  1. AZITHROMYCIN [Suspect]
     Dosage: UNK
  2. PRILOSEC [Suspect]
     Dosage: UNK

REACTIONS (4)
  - Vertigo [Unknown]
  - Ear disorder [Unknown]
  - Vomiting [Unknown]
  - Nausea [Unknown]
